FAERS Safety Report 25630642 (Version 1)
Quarter: 2025Q3

REPORT INFORMATION
  Report Type: Spontaneous
  Country: EU (occurrence: EU)
  Receive Date: 20250801
  Receipt Date: 20250801
  Transmission Date: 20251021
  Serious: Yes (Other)
  Sender: NORDIC PHARMA
  Company Number: EU-PFIZER INC-PV202500080314

PATIENT
  Age: 73 Year
  Sex: Male

DRUGS (1)
  1. METHOTREXATE SODIUM [Suspect]
     Active Substance: METHOTREXATE SODIUM
     Indication: Axial spondyloarthritis
     Route: 065

REACTIONS (4)
  - Immunodeficiency [Unknown]
  - Campylobacter infection [Recovering/Resolving]
  - Product use in unapproved indication [Unknown]
  - Enterocolitis [Recovering/Resolving]
